FAERS Safety Report 6401149-4 (Version None)
Quarter: 2009Q4

REPORT INFORMATION
  Report Type: 
  Country: None (occurrence: None)
  Receive Date: 20091015
  Receipt Date: 20091007
  Transmission Date: 20100525
  Serious: Yes (Other)
  Sender: FDA-Public Use
  Company Number: CA-AMGEN-QUU367006

PATIENT
  Sex: Female

DRUGS (3)
  1. ENBREL [Suspect]
     Indication: RHEUMATOID ARTHRITIS
     Dates: start: 20030731, end: 20090712
  2. METHOTREXATE [Concomitant]
  3. NSAID [Concomitant]

REACTIONS (4)
  - B-CELL LYMPHOMA [None]
  - CORONARY ARTERY DISEASE [None]
  - RHEUMATOID ARTHRITIS [None]
  - SYNOVITIS [None]
